FAERS Safety Report 17841178 (Version 3)
Quarter: 2020Q4

REPORT INFORMATION
  Report Type: Spontaneous
  Country: DE (occurrence: DE)
  Receive Date: 20200529
  Receipt Date: 20201208
  Transmission Date: 20210113
  Serious: Yes (Hospitalization, Other)
  Sender: FDA-Public Use
  Company Number: DE-JNJFOC-20200524734

PATIENT
  Age: 30 Year
  Sex: Male

DRUGS (4)
  1. RISPERDAL [Suspect]
     Active Substance: RISPERIDONE
     Dosage: 6 MG TO 3 MG
     Route: 048
     Dates: start: 20190102, end: 20190222
  2. RISPERDAL [Suspect]
     Active Substance: RISPERIDONE
     Dosage: 3MG TO 6 MG
     Route: 048
     Dates: start: 20190223, end: 20190531
  3. RISPERDAL [Suspect]
     Active Substance: RISPERIDONE
     Indication: SCHIZOPHRENIA
     Route: 048
     Dates: start: 20161201, end: 20181001
  4. RISPERDAL [Suspect]
     Active Substance: RISPERIDONE
     Route: 048
     Dates: start: 20181101, end: 20190101

REACTIONS (3)
  - Memory impairment [Recovered/Resolved]
  - Psychotic symptom [Unknown]
  - Disturbance in attention [Recovered/Resolved]

NARRATIVE: CASE EVENT DATE: 20181101
